FAERS Safety Report 17222675 (Version 1)
Quarter: 2020Q1

REPORT INFORMATION
  Report Type: Spontaneous
  Country: CA (occurrence: CA)
  Receive Date: 20200102
  Receipt Date: 20200102
  Transmission Date: 20200409
  Serious: Yes (Other)
  Sender: FDA-Public Use
  Company Number: CA-MACLEODS PHARMACEUTICALS US LTD-MAC2019024426

PATIENT

DRUGS (9)
  1. OLANZAPINE 10 MG [Suspect]
     Active Substance: OLANZAPINE
     Indication: AUTISM SPECTRUM DISORDER
     Dosage: 10 MILLIGRAM, BID
     Route: 065
  2. QUETIAPINE. [Suspect]
     Active Substance: QUETIAPINE
     Indication: INTELLECTUAL DISABILITY
     Dosage: 500 MILLIGRAM, QHS, EVERY BEDTIME
     Route: 065
  3. CLONIDINE. [Suspect]
     Active Substance: CLONIDINE
     Indication: INTELLECTUAL DISABILITY
  4. OLANZAPINE 10 MG [Suspect]
     Active Substance: OLANZAPINE
     Indication: INTELLECTUAL DISABILITY
  5. SERTALINE [Suspect]
     Active Substance: SERTRALINE HYDROCHLORIDE
     Indication: INTELLECTUAL DISABILITY
  6. LAMOTRIGINE. [Suspect]
     Active Substance: LAMOTRIGINE
     Indication: BEHAVIOUR DISORDER
     Dosage: 25 MILLIGRAM, QHS, EVERY BEDTIME
     Route: 065
  7. QUETIAPINE. [Suspect]
     Active Substance: QUETIAPINE
     Indication: AUTISM SPECTRUM DISORDER
  8. SERTALINE [Suspect]
     Active Substance: SERTRALINE HYDROCHLORIDE
     Indication: AUTISM SPECTRUM DISORDER
     Dosage: 100 MILLIGRAM, QD, EVERY MORNING
     Route: 065
  9. CLONIDINE. [Suspect]
     Active Substance: CLONIDINE
     Indication: AUTISM SPECTRUM DISORDER
     Dosage: 0.1 MILLIGRAM, BID
     Route: 065

REACTIONS (2)
  - Obesity [Recovering/Resolving]
  - Blood prolactin increased [Recovered/Resolved]
